FAERS Safety Report 6378100-9 (Version None)
Quarter: 2009Q3

REPORT INFORMATION
  Report Type: 
  Country: None (occurrence: None)
  Receive Date: 20090925
  Receipt Date: 20090917
  Transmission Date: 20100115
  Serious: Yes (Other)
  Sender: FDA-Public Use
  Company Number: DE-ABBOTT-09P-062-0598973-00

PATIENT
  Sex: Male

DRUGS (2)
  1. ENANTONE MONATSDEPOT [Suspect]
     Indication: PROSTATE CANCER
     Route: 058
     Dates: start: 20090814
  2. FLUTAMIDE [Concomitant]
     Indication: PROSTATE CANCER
     Route: 048
     Dates: start: 20090806, end: 20090820

REACTIONS (9)
  - ARTHRALGIA [None]
  - BONE PAIN [None]
  - FATIGUE [None]
  - MOBILITY DECREASED [None]
  - MUSCLE ATROPHY [None]
  - MYALGIA [None]
  - OEDEMA PERIPHERAL [None]
  - POLYNEUROPATHY [None]
  - QUALITY OF LIFE DECREASED [None]
